FAERS Safety Report 9818152 (Version 2)
Quarter: 2014Q1

REPORT INFORMATION
  Report Type: Report from Study
  Country: US (occurrence: US)
  Receive Date: 20140115
  Receipt Date: 20140115
  Transmission Date: 20141002
  Serious: Yes (Death, Hospitalization, Other)
  Sender: FDA-Public Use
  Company Number: US-TEVA-450762USA

PATIENT
  Age: 66 Year
  Sex: Male

DRUGS (3)
  1. CLOZAPINE [Suspect]
     Indication: SCHIZOPHRENIA
     Route: 048
  2. ASPIRIN [Concomitant]
     Dosage: 81 MILLIGRAM DAILY;
  3. MULTIVITAMIN [Concomitant]

REACTIONS (8)
  - Leiomyosarcoma [Fatal]
  - Retroperitoneal mass [Fatal]
  - Renal neoplasm [Fatal]
  - Renal cancer [Fatal]
  - Gastrointestinal carcinoma [Fatal]
  - Mental status changes [Unknown]
  - Small intestinal obstruction [Unknown]
  - Hydronephrosis [Unknown]
